FAERS Safety Report 10365062 (Version 1)
Quarter: 2014Q3

REPORT INFORMATION
  Report Type: Spontaneous
  Country: US (occurrence: US)
  Receive Date: 20140806
  Receipt Date: 20140806
  Transmission Date: 20150326
  Serious: No
  Sender: FDA-Public Use
  Company Number: US-GLAXOSMITHKLINE-A1070616A

PATIENT
  Age: 89 Year
  Sex: Male

DRUGS (9)
  1. CIPROFLOXACIN. [Concomitant]
     Active Substance: CIPROFLOXACIN
  2. TOPROL XL [Concomitant]
     Active Substance: METOPROLOL SUCCINATE
  3. KLOR-CON M [Concomitant]
     Active Substance: POTASSIUM CHLORIDE
  4. LOSARTAN [Concomitant]
     Active Substance: LOSARTAN
  5. CRESTOR [Concomitant]
     Active Substance: ROSUVASTATIN CALCIUM
  6. LASIX [Concomitant]
     Active Substance: FUROSEMIDE
  7. AVODART [Concomitant]
     Active Substance: DUTASTERIDE
  8. ADVAIR HFA [Suspect]
     Active Substance: FLUTICASONE PROPIONATE\SALMETEROL XINAFOATE
     Indication: PNEUMONIA
     Dosage: 2PUFF TWICE PER DAY
     Route: 055
     Dates: start: 20140411, end: 20140413
  9. LISINOPRIL. [Concomitant]
     Active Substance: LISINOPRIL

REACTIONS (3)
  - Candida infection [Recovering/Resolving]
  - Scab [Unknown]
  - Stomatitis [Unknown]

NARRATIVE: CASE EVENT DATE: 20140412
